FAERS Safety Report 4531697-3 (Version None)
Quarter: 2004Q4

REPORT INFORMATION
  Report Type: 
  Country: None (occurrence: None)
  Receive Date: 20041206
  Receipt Date: 20040923
  Transmission Date: 20050328
  Serious: No
  Sender: FDA-Public Use
  Company Number: USA040978954

PATIENT
  Age: 45 Year
  Sex: Female
  Weight: 50 kg

DRUGS (7)
  1. CYMBALTA [Suspect]
     Indication: DEPRESSION
     Dosage: 120 MG DAY
     Dates: start: 20040915
  2. CYMBALTA [Suspect]
     Indication: DRUG RESISTANCE
     Dosage: 120 MG DAY
     Dates: start: 20040915
  3. BUPROPION HCL [Concomitant]
  4. METHYLPHENIDATE [Concomitant]
  5. ALPRAZOLAM [Concomitant]
  6. HORMONE REPLACEMENT THERAPY [Concomitant]
  7. NEURONTIN (GABAPENTIN PFIZER) [Concomitant]

REACTIONS (1)
  - PRESCRIBED OVERDOSE [None]
